FAERS Safety Report 7368017-5 (Version None)
Quarter: 2011Q1

REPORT INFORMATION
  Report Type: 
  Country: None (occurrence: None)
  Receive Date: 20110322
  Receipt Date: 20110301
  Transmission Date: 20110831
  Serious: Yes (Other)
  Sender: FDA-Public Use
  Company Number: US-BAYER-201032940NA

PATIENT
  Sex: Female
  Weight: 64 kg

DRUGS (24)
  1. SENSIPAR [Concomitant]
  2. DIPHENHYDRAMINE [Concomitant]
  3. MAGNEVIST [Suspect]
     Indication: NUCLEAR MAGNETIC RESONANCE IMAGING
  4. OMNISCAN [Suspect]
     Indication: NUCLEAR MAGNETIC RESONANCE IMAGING
  5. RESTORIL [Concomitant]
  6. PARICALCITOL [Concomitant]
  7. MIDODRINE HYDROCHLORIDE [Concomitant]
  8. NEPHROCAPS [Concomitant]
  9. ASPIRIN [Concomitant]
  10. HECTOROL [Concomitant]
  11. ZANTAC [Concomitant]
  12. GADOLINIUM IN UNSPECIFIED DRUG [Suspect]
     Indication: NUCLEAR MAGNETIC RESONANCE IMAGING
     Dosage: UNK
     Dates: start: 20040106, end: 20040106
  13. FERLECIT [Concomitant]
  14. RENAGEL [Concomitant]
  15. GADOLINIUM IN UNSPECIFIED DRUG [Suspect]
     Dosage: UNK
     Dates: start: 20051020, end: 20051020
  16. EPOGEN [Concomitant]
  17. FERROUS SULFATE TAB [Concomitant]
  18. VITAMIN B6 [Concomitant]
  19. DOXERCALCIFEROL [Concomitant]
  20. PHOSLO [Concomitant]
  21. FOSAMAX [Concomitant]
  22. UNCODEABLE ^INVESTIGATIONAL DRUG^ [Concomitant]
  23. VICODIN [Concomitant]
  24. LISINOPRIL [Concomitant]

REACTIONS (13)
  - SKIN HYPERTROPHY [None]
  - RASH MACULAR [None]
  - PAIN [None]
  - GAIT DISTURBANCE [None]
  - SKIN TIGHTNESS [None]
  - SKIN PLAQUE [None]
  - PAIN IN EXTREMITY [None]
  - SKIN HYPERPIGMENTATION [None]
  - MUSCULOSKELETAL STIFFNESS [None]
  - NEPHROGENIC SYSTEMIC FIBROSIS [None]
  - SKIN INDURATION [None]
  - LOCALISED OEDEMA [None]
  - SKIN FIBROSIS [None]
